APPROVED DRUG PRODUCT: ISUPREL
Active Ingredient: ISOPROTERENOL HYDROCHLORIDE
Strength: 1%
Dosage Form/Route: SOLUTION;INHALATION
Application: N006327 | Product #003
Applicant: SANOFI AVENTIS US LLC
Approved: Approved Prior to Jan 1, 1982 | RLD: No | RS: No | Type: DISCN